FAERS Safety Report 25013481 (Version 1)
Quarter: 2025Q1

REPORT INFORMATION
  Report Type: Spontaneous
  Country: CN (occurrence: CN)
  Receive Date: 20250226
  Receipt Date: 20250226
  Transmission Date: 20250409
  Serious: Yes (Hospitalization)
  Sender: MERCK SHARP & DOHME LLC
  Company Number: CN-009507513-2256893

PATIENT
  Age: 56 Year
  Sex: Male
  Weight: 65 kg

DRUGS (3)
  1. PEMBROLIZUMAB [Suspect]
     Active Substance: PEMBROLIZUMAB
     Indication: Lip neoplasm malignant stage unspecified
     Route: 041
     Dates: start: 20250108, end: 20250108
  2. PACLITAXEL [Suspect]
     Active Substance: PACLITAXEL
     Indication: Lip neoplasm malignant stage unspecified
     Dates: start: 20250108
  3. CISPLATIN [Suspect]
     Active Substance: CISPLATIN
     Indication: Lip neoplasm malignant stage unspecified
     Dates: start: 20250108

REACTIONS (4)
  - Immune-mediated myocarditis [Recovering/Resolving]
  - Product use issue [Unknown]
  - Immune-mediated thyroiditis [Recovering/Resolving]
  - Muscular weakness [Recovering/Resolving]

NARRATIVE: CASE EVENT DATE: 20250108
